FAERS Safety Report 5042000-7 (Version None)
Quarter: 2006Q2

REPORT INFORMATION
  Report Type: 
  Country: None (occurrence: None)
  Receive Date: 20060627
  Receipt Date: 20060615
  Transmission Date: 20061013
  Serious: Yes (Other)
  Sender: FDA-Public Use
  Company Number: 060620-0000516

PATIENT
  Age: 3 Day
  Sex: Male
  Weight: 2.17 kg

DRUGS (4)
  1. INDOMETHACIN [Suspect]
     Indication: PATENT DUCTUS ARTERIOSUS
     Dosage: 0.2 MG/KG EVERY 12 HOURS IV; 0.1 MG/KG 1X IV
     Route: 042
  2. AMPICILLIN [Concomitant]
  3. GEMTAMICIN [Concomitant]
  4. SURFACTANT [Concomitant]

REACTIONS (5)
  - DRUG RESISTANCE [None]
  - ENTEROBACTER SEPSIS [None]
  - NEUTROPENIA NEONATAL [None]
  - THROMBOCYTOPENIA NEONATAL [None]
  - WHITE BLOOD CELL COUNT DECREASED [None]
